FAERS Safety Report 7422994-2 (Version None)
Quarter: 2011Q2

REPORT INFORMATION
  Report Type: 
  Country: None (occurrence: None)
  Receive Date: 20110414
  Receipt Date: 20110414
  Transmission Date: 20111010
  Serious: Yes (Other)
  Sender: FDA-Public Use
  Company Number: None

PATIENT
  Age: 62 Year
  Sex: Female
  Weight: 92.0802 kg

DRUGS (2)
  1. ARICEPT [Suspect]
     Indication: CONFUSIONAL STATE
     Dosage: 5MG DAILY PO
     Route: 048
     Dates: start: 20110402, end: 20110409
  2. ARICEPT [Suspect]
     Indication: MEMORY IMPAIRMENT
     Dosage: 5MG DAILY PO
     Route: 048
     Dates: start: 20110402, end: 20110409

REACTIONS (2)
  - MUSCLE SPASMS [None]
  - TENDON DISORDER [None]
